FAERS Safety Report 8544599-2 (Version None)
Quarter: 2012Q3

REPORT INFORMATION
  Report Type: 
  Country: None (occurrence: None)
  Receive Date: 20120727
  Receipt Date: 20120718
  Transmission Date: 20120928
  Serious: Yes (Other)
  Sender: FDA-Public Use
  Company Number: JP-VERTEX PHARMACEUTICALS INC.-AE-2012-005979

PATIENT
  Age: 60 Year
  Sex: Male

DRUGS (19)
  1. PEG-INTRON [Concomitant]
     Route: 058
     Dates: start: 20120111, end: 20120125
  2. URSO 250 [Concomitant]
     Route: 048
  3. TELAVIC (TELAPREVIR) [Suspect]
     Route: 048
     Dates: start: 20120330
  4. REBETOL [Concomitant]
     Route: 048
     Dates: start: 20120224, end: 20120301
  5. EPADEL S [Concomitant]
     Route: 048
     Dates: start: 20120217
  6. HANGESHASHINTO EXTRACT GRANULES [Concomitant]
     Route: 048
     Dates: start: 20120217
  7. LORFENAMIN [Concomitant]
     Route: 048
     Dates: start: 20120111, end: 20120124
  8. REBETOL [Concomitant]
     Route: 048
     Dates: start: 20120518, end: 20120531
  9. TELAVIC (TELAPREVIR) [Suspect]
     Indication: HEPATITIS C
     Route: 048
     Dates: start: 20120111, end: 20120329
  10. TELAVIC (TELAPREVIR) [Suspect]
     Route: 048
     Dates: start: 20120330, end: 20120406
  11. PEG-INTRON [Concomitant]
     Route: 058
     Dates: start: 20120111, end: 20120224
  12. PEG-INTRON [Concomitant]
     Route: 058
     Dates: start: 20120203
  13. L-CARTIN [Concomitant]
     Route: 048
     Dates: start: 20120518
  14. REBETOL [Concomitant]
     Indication: HEPATITIS C
     Route: 048
     Dates: start: 20120111, end: 20120223
  15. REBETOL [Concomitant]
     Route: 048
     Dates: start: 20120302, end: 20120517
  16. PEG-INTRON [Concomitant]
     Route: 058
     Dates: start: 20120126, end: 20120531
  17. MUCOSTA [Concomitant]
     Route: 048
     Dates: start: 20120118
  18. LYRICA [Concomitant]
     Route: 048
     Dates: start: 20120121
  19. LENDORMIN [Concomitant]
     Route: 048
     Dates: start: 20120217

REACTIONS (2)
  - HAEMOGLOBIN DECREASED [None]
  - INTERSTITIAL LUNG DISEASE [None]
